FAERS Safety Report 12235697 (Version 1)
Quarter: 2016Q2

REPORT INFORMATION
  Report Type: Spontaneous
  Country: IT (occurrence: IT)
  Receive Date: 20160404
  Receipt Date: 20160404
  Transmission Date: 20160815
  Serious: Yes (Hospitalization)
  Sender: FDA-Public Use
  Company Number: IT-ASTRAZENECA-2016SE35122

PATIENT
  Age: 26316 Day
  Sex: Female
  Weight: 60 kg

DRUGS (3)
  1. OMEPRAZEN [Suspect]
     Active Substance: OMEPRAZOLE
     Route: 048
     Dates: start: 20160101, end: 20160323
  2. AIRTAL [Suspect]
     Active Substance: ACECLOFENAC
     Indication: ARTHRALGIA
     Dates: start: 20160323, end: 20160323
  3. PLAQUENIL [Suspect]
     Active Substance: HYDROXYCHLOROQUINE SULFATE
     Indication: RHEUMATOID ARTHRITIS
     Dates: start: 20160101, end: 20160323

REACTIONS (3)
  - Amnesia [Recovered/Resolved]
  - Delusion [Recovered/Resolved]
  - Fatigue [Recovered/Resolved]

NARRATIVE: CASE EVENT DATE: 20160324
